FAERS Safety Report 22533394 (Version 3)
Quarter: 2023Q2

REPORT INFORMATION
  Report Type: Spontaneous
  Country: PL (occurrence: PL)
  Receive Date: 20230608
  Receipt Date: 20230620
  Transmission Date: 20230722
  Serious: Yes (Hospitalization, Other)
  Sender: FDA-Public Use
  Company Number: PL-AUROBINDO-AUR-APL-2023-040567

PATIENT
  Age: 55 Year
  Sex: Female

DRUGS (5)
  1. MIRTAZAPINE [Suspect]
     Active Substance: MIRTAZAPINE
     Indication: Insomnia
     Dosage: 15 MILLIGRAM, ONCE A DAY (NIGHT)
     Route: 065
  2. ALPRAZOLAM [Suspect]
     Active Substance: ALPRAZOLAM
     Indication: Insomnia
     Dosage: 0.5 MILLIGRAM, AS NECESSARY
     Route: 065
  3. ALPRAZOLAM [Suspect]
     Active Substance: ALPRAZOLAM
     Indication: Anxiety
  4. HYDROXYZINE [Concomitant]
     Active Substance: HYDROXYZINE HYDROCHLORIDE
     Indication: Insomnia
     Dosage: UNK
     Route: 065
  5. MIANSERIN [Concomitant]
     Active Substance: MIANSERIN
     Indication: Insomnia
     Dosage: 40 MILLIGRAM (IN AN INCREASING DOSE)
     Route: 065

REACTIONS (6)
  - Altered state of consciousness [Recovering/Resolving]
  - Drug ineffective [Unknown]
  - Hallucination [Recovered/Resolved]
  - Insomnia [Recovered/Resolved]
  - Therapeutic product effect incomplete [Recovered/Resolved]
  - Off label use [Unknown]
